FAERS Safety Report 6184481-1 (Version None)
Quarter: 2009Q2

REPORT INFORMATION
  Report Type: 
  Country: None (occurrence: None)
  Receive Date: 20090508
  Receipt Date: 20081125
  Transmission Date: 20091009
  Serious: Yes (Other)
  Sender: FDA-Public Use
  Company Number: US-PFIZER INC-2007025714

PATIENT
  Sex: Female
  Weight: 45 kg

DRUGS (10)
  1. CHANTIX [Suspect]
     Indication: SMOKING CESSATION THERAPY
     Dosage: EVERY DAY
     Dates: start: 20061001
  2. SPIRIVA [Suspect]
     Indication: EMPHYSEMA
  3. ADVAIR HFA [Suspect]
     Route: 055
  4. ALBUTEROL [Suspect]
  5. SEROQUEL [Concomitant]
     Indication: DEPRESSION
  6. NORVASC [Concomitant]
     Indication: HYPERTENSION
  7. LIPITOR [Concomitant]
     Indication: BLOOD CHOLESTEROL INCREASED
  8. TRAMADOL HCL [Concomitant]
     Indication: ARTHRITIS
  9. CITALOPRAM HYDROBROMIDE [Concomitant]
     Indication: DEPRESSION
  10. FLUCONAZOLE [Concomitant]
     Indication: FUNGAL INFECTION

REACTIONS (6)
  - ABDOMINAL DISCOMFORT [None]
  - FUNGAL INFECTION [None]
  - LARYNGITIS [None]
  - NAUSEA [None]
  - VOMITING [None]
  - WRONG TECHNIQUE IN DRUG USAGE PROCESS [None]
